FAERS Safety Report 7000310-8 (Version None)
Quarter: 2010Q3

REPORT INFORMATION
  Report Type: 
  Country: None (occurrence: None)
  Receive Date: 20100920
  Receipt Date: 20100720
  Transmission Date: 20110219
  Serious: No
  Sender: FDA-Public Use
  Company Number: US-ASTRAZENECA-2010SE33724

PATIENT
  Age: 83 Year
  Sex: Female

DRUGS (5)
  1. SEROQUEL [Suspect]
     Indication: SLEEP DISORDER
     Route: 048
     Dates: start: 20090101
  2. ALPRAZOLAM [Concomitant]
  3. PRILOSEC [Concomitant]
  4. HYDROCHLOROTHIAZIDE [Concomitant]
  5. VYTORIN [Concomitant]

REACTIONS (2)
  - DRUG INEFFECTIVE FOR UNAPPROVED INDICATION [None]
  - SLEEP DISORDER [None]
